FAERS Safety Report 20418349 (Version 1)
Quarter: 2022Q1

REPORT INFORMATION
  Report Type: Spontaneous
  Country: US (occurrence: None)
  Receive Date: 20220202
  Receipt Date: 20220202
  Transmission Date: 20220424
  Serious: No
  Sender: FDA-Public Use
  Company Number: None

PATIENT
  Age: 62 Year
  Sex: Male

DRUGS (1)
  1. PRIVIGEN [Suspect]
     Active Substance: HUMAN IMMUNOGLOBULIN G
     Indication: Hypogammaglobulinaemia
     Dosage: FREQUENCY : ONCE;?
     Route: 042
     Dates: start: 20220125, end: 20220125

REACTIONS (5)
  - Pruritus [None]
  - Rash [None]
  - Chest discomfort [None]
  - Oxygen saturation decreased [None]
  - Nausea [None]

NARRATIVE: CASE EVENT DATE: 20220125
